FAERS Safety Report 8211602-9 (Version None)
Quarter: 2012Q1

REPORT INFORMATION
  Report Type: 
  Country: None (occurrence: None)
  Receive Date: 20120315
  Receipt Date: 20120301
  Transmission Date: 20120608
  Serious: Yes (Death, Hospitalization, Other)
  Sender: FDA-Public Use
  Company Number: GB-CELGENEUS-167-20785-12020982

PATIENT
  Sex: Female
  Weight: 51 kg

DRUGS (12)
  1. DALTEPARIN SODIUM [Concomitant]
     Dosage: 5000 UNITS/DAY
     Route: 058
  2. METOCLOPRAMIDE [Concomitant]
     Route: 065
  3. DOCUSATE [Concomitant]
     Route: 065
  4. LANSOPRAZOLE [Concomitant]
     Route: 065
  5. FUROSEMIDE [Concomitant]
     Route: 065
  6. OXYCONTIN [Concomitant]
     Route: 065
  7. ALLOPURINOL [Concomitant]
     Route: 065
  8. DEXAMETHASONE [Concomitant]
     Route: 065
  9. OXYCODONE HCL [Concomitant]
     Route: 065
  10. OXYCODONE HCL [Concomitant]
     Route: 065
  11. THALIDOMIDE [Suspect]
     Indication: MULTIPLE MYELOMA
     Dosage: 50 MILLIGRAM
     Route: 048
  12. OXYCONTIN [Concomitant]
     Route: 065

REACTIONS (2)
  - PULMONARY EMBOLISM [None]
  - PULMONARY FIBROSIS [None]
